FAERS Safety Report 6635218-0 (Version None)
Quarter: 2010Q1

REPORT INFORMATION
  Report Type: 
  Country: None (occurrence: None)
  Receive Date: 20100315
  Receipt Date: 20091027
  Transmission Date: 20100710
  Serious: Yes (Life-Threatening, Hospitalization)
  Sender: FDA-Public Use
  Company Number: IT-SANOFI-AVENTIS-200917350GDDC

PATIENT
  Age: 41 Year
  Sex: Male
  Weight: 84 kg

DRUGS (14)
  1. AFLIBERCEPT [Suspect]
     Dosage: DOSE UNIT: 4 MG/KG
     Route: 042
     Dates: start: 20090721, end: 20090721
  2. AFLIBERCEPT [Suspect]
     Dosage: DOSE UNIT: 4 MG/KG
     Route: 042
     Dates: start: 20090707, end: 20090707
  3. OXALIPLATIN [Suspect]
     Dosage: DOSE UNIT: 85 MG/M**2
     Route: 042
     Dates: start: 20090721, end: 20090721
  4. OXALIPLATIN [Suspect]
     Dosage: DOSE UNIT: 85 MG/M**2
     Route: 042
     Dates: start: 20090707, end: 20090707
  5. FLUOROURACIL [Suspect]
     Dosage: DOSE UNIT: 2800 MG/M**2
     Route: 042
     Dates: start: 20090721, end: 20090721
  6. FLUOROURACIL [Suspect]
     Dosage: DOSE UNIT: 2800 MG/M**2
     Route: 042
     Dates: start: 20090707, end: 20090707
  7. LEUCOVORIN CALCIUM [Suspect]
     Dosage: DOSE UNIT: 175 MG/M**2
     Route: 042
     Dates: start: 20090721, end: 20090721
  8. LEUCOVORIN CALCIUM [Suspect]
     Route: 042
     Dates: start: 20090707, end: 20090707
  9. PAROXETINE HYDROCHLORIDE [Concomitant]
     Dosage: DOSE AS USED: UNK
  10. DIFLUCAN [Concomitant]
     Dates: end: 20090729
  11. IMIPENEM AND CILASTATIN SODIUM [Concomitant]
  12. METRONIDAZOLE [Concomitant]
     Dates: end: 20090801
  13. ZANTAC [Concomitant]
     Dates: end: 20090726
  14. LONGASTATINA [Concomitant]
     Dates: start: 20090722, end: 20090802

REACTIONS (2)
  - INTESTINAL PERFORATION [None]
  - LEUKOPENIA [None]
